FAERS Safety Report 12952766 (Version 1)
Quarter: 2016Q4

REPORT INFORMATION
  Report Type: Spontaneous
  Country: US (occurrence: US)
  Receive Date: 20161117
  Receipt Date: 20161117
  Transmission Date: 20170207
  Serious: No
  Sender: FDA-Public Use
  Company Number: US-PFIZER INC-2016529514

PATIENT
  Age: 51 Year
  Sex: Female
  Weight: 73 kg

DRUGS (2)
  1. XELJANZ XR [Suspect]
     Active Substance: TOFACITINIB CITRATE
     Indication: RHEUMATOID ARTHRITIS
     Dosage: 11 MG, UNK
     Dates: start: 201609, end: 20161101
  2. HYDROCODONE [Concomitant]
     Active Substance: HYDROCODONE
     Indication: PAIN
     Dosage: 10 MG, 3X/DAY
     Dates: end: 201610

REACTIONS (2)
  - Pollakiuria [Not Recovered/Not Resolved]
  - Vaginal discharge [Not Recovered/Not Resolved]
